FAERS Safety Report 7053817-1 (Version None)
Quarter: 2010Q4

REPORT INFORMATION
  Report Type: 
  Country: None (occurrence: None)
  Receive Date: 20101020
  Receipt Date: 20101015
  Transmission Date: 20110411
  Serious: Yes (Hospitalization)
  Sender: FDA-Public Use
  Company Number: IT-BAYER-201042581GPV

PATIENT
  Age: 49 Year
  Sex: Female

DRUGS (2)
  1. ASPIRIN [Suspect]
     Indication: DYSMENORRHOEA
     Dosage: TOTAL DAILY DOSE: 500 MG
     Route: 048
     Dates: start: 20101014, end: 20101014
  2. CITALOPRAM HYDROBROMIDE [Concomitant]
     Route: 048

REACTIONS (4)
  - ANGIOEDEMA [None]
  - DYSPHONIA [None]
  - EYELID OEDEMA [None]
  - PRURITUS [None]
